FAERS Safety Report 9628629 (Version 4)
Quarter: 2014Q2

REPORT INFORMATION
  Report Type: Spontaneous
  Country: FR (occurrence: FR)
  Receive Date: 20131017
  Receipt Date: 20140616
  Transmission Date: 20141212
  Serious: Yes (Death, Hospitalization, Other)
  Sender: FDA-Public Use
  Company Number: FR-ALEXION PHARMACEUTICALS INC.-A201302585

PATIENT
  Sex: 0

DRUGS (22)
  1. SOLIRIS 300MG [Suspect]
     Indication: GLOMERULONEPHRITIS MEMBRANOPROLIFERATIVE
     Dosage: 900 MG, UNK
     Route: 042
     Dates: start: 20130725
  2. SOLIRIS 300MG [Suspect]
     Indication: GLOMERULONEPHRITIS
     Dosage: 1200 MG, SINGLE
     Route: 042
     Dates: start: 20130820, end: 20130820
  3. SOLIRIS 300MG [Suspect]
     Indication: OFF LABEL USE
     Dosage: 1200 MG, SINGLE
     Route: 042
     Dates: start: 20130903, end: 20130903
  4. SOLIRIS 300MG [Suspect]
     Dosage: 1200 MG, SINGLE
     Route: 042
     Dates: start: 20130917, end: 20130917
  5. ARANESP [Concomitant]
     Dosage: 20 ?G, UNK
  6. HEPARINE [Concomitant]
  7. ZYMAD [Concomitant]
  8. VENOFER [Concomitant]
  9. STRUCTOKABIVEN [Concomitant]
  10. FRESUBIN [Concomitant]
  11. CALCIDIA [Concomitant]
  12. ORACILLINE [Concomitant]
  13. LYRICA [Concomitant]
  14. SOLUPRED [Concomitant]
  15. NOVORAPID [Concomitant]
  16. TRANSIPEG [Concomitant]
  17. INEXIUM [Concomitant]
  18. LASILIX [Concomitant]
  19. LAROXYL [Concomitant]
  20. LIORESAL [Concomitant]
  21. AMLOR [Concomitant]
  22. TENORMINE [Concomitant]

REACTIONS (5)
  - Meningoencephalitis herpetic [Fatal]
  - Convulsion [Unknown]
  - Coma [Unknown]
  - Quadriplegia [Unknown]
  - Off label use [Unknown]
